FAERS Safety Report 11275284 (Version 1)
Quarter: 2015Q3

REPORT INFORMATION
  Report Type: Spontaneous
  Country: US (occurrence: None)
  Receive Date: 20150715
  Receipt Date: 20150715
  Transmission Date: 20151125
  Serious: Yes (Other)
  Sender: FDA-Public Use
  Company Number: None

PATIENT
  Sex: Male

DRUGS (1)
  1. BOTOX [Suspect]
     Active Substance: ONABOTULINUMTOXINA
     Indication: ILL-DEFINED DISORDER
     Dosage: 200 UNITS ?Q3M?IM
     Route: 030
     Dates: start: 20150401

REACTIONS (1)
  - Feeling abnormal [None]
